FAERS Safety Report 18238826 (Version 8)
Quarter: 2023Q1

REPORT INFORMATION
  Report Type: Report from Study
  Country: JP (occurrence: JP)
  Receive Date: 20200907
  Receipt Date: 20230317
  Transmission Date: 20230417
  Serious: Yes (Other)
  Sender: FDA-Public Use
  Company Number: JP-JNJFOC-20200844384

PATIENT
  Age: 51 Year
  Sex: Male
  Weight: 67.2 kg

DRUGS (17)
  1. SIRTURO [Suspect]
     Active Substance: BEDAQUILINE FUMARATE
     Indication: Pulmonary tuberculosis
     Route: 048
     Dates: start: 20190305, end: 20190319
  2. SIRTURO [Suspect]
     Active Substance: BEDAQUILINE FUMARATE
     Indication: Pulmonary tuberculosis
     Route: 048
     Dates: start: 20190320
  3. LINEZOLID [Suspect]
     Active Substance: LINEZOLID
     Indication: Pulmonary tuberculosis
     Route: 048
     Dates: start: 20190305, end: 20190724
  4. LINEZOLID [Suspect]
     Active Substance: LINEZOLID
     Indication: Pulmonary tuberculosis
     Route: 048
     Dates: start: 20190725, end: 20190727
  5. KANAMYCIN SULFATE [Suspect]
     Active Substance: KANAMYCIN SULFATE
     Indication: Pulmonary tuberculosis
     Route: 065
     Dates: start: 20190306, end: 20190822
  6. DELAMANID [Concomitant]
     Active Substance: DELAMANID
     Indication: Pulmonary tuberculosis
     Route: 048
     Dates: start: 20190305
  7. LEVOFLOXACIN HEMIHYDRATE [Concomitant]
     Active Substance: LEVOFLOXACIN
     Indication: Pulmonary tuberculosis
     Dosage: DOSE UNKNOWN
     Route: 048
  8. LEVOFLOXACIN HEMIHYDRATE [Concomitant]
     Active Substance: LEVOFLOXACIN
     Indication: Pulmonary tuberculosis
     Dosage: DOSE UNKNOWN
     Route: 048
     Dates: start: 20181109, end: 20190304
  9. LEVOFLOXACIN HEMIHYDRATE [Concomitant]
     Active Substance: LEVOFLOXACIN
     Indication: Pulmonary tuberculosis
     Route: 048
     Dates: start: 20190305
  10. REBAMIPIDE [Concomitant]
     Active Substance: REBAMIPIDE
     Indication: Prophylaxis
     Route: 048
  11. URSO [Concomitant]
     Active Substance: URSODIOL
     Indication: Hepatic function abnormal
     Route: 048
     Dates: start: 20190312, end: 20190404
  12. URSO [Concomitant]
     Active Substance: URSODIOL
     Route: 048
     Dates: start: 20190415
  13. BELSOMRA [Concomitant]
     Active Substance: SUVOREXANT
     Indication: Insomnia
     Route: 048
     Dates: start: 20190314, end: 20190507
  14. PROMETHAZINE HYDROCHLORIDE [Concomitant]
     Active Substance: PROMETHAZINE HYDROCHLORIDE
     Indication: Nasopharyngitis
     Route: 048
     Dates: start: 20190531, end: 20190605
  15. METHYLCOBALAMIN [Concomitant]
     Active Substance: METHYLCOBALAMIN
     Indication: Neuropathy peripheral
     Route: 048
     Dates: start: 20190627
  16. LYRICA [Concomitant]
     Active Substance: PREGABALIN
     Indication: Neuropathy peripheral
     Route: 048
     Dates: start: 20190627
  17. NEOPHAGEN [CYSTEINE;GLYCINE;GLYCYRRHIZIC ACID] [Concomitant]
     Indication: Hepatic function abnormal
     Route: 065
     Dates: start: 20190322, end: 20190418

REACTIONS (5)
  - Renal impairment [Recovered/Resolved]
  - Neuropathy peripheral [Not Recovered/Not Resolved]
  - Hepatic function abnormal [Recovered/Resolved]
  - Anaemia [Recovered/Resolved]
  - Nasopharyngitis [Recovered/Resolved]

NARRATIVE: CASE EVENT DATE: 20190311
